FAERS Safety Report 18672394 (Version 2)
Quarter: 2025Q3

REPORT INFORMATION
  Report Type: Spontaneous
  Country: US (occurrence: US)
  Receive Date: 20201228
  Receipt Date: 20250721
  Transmission Date: 20251020
  Serious: Yes (Hospitalization, Other)
  Sender: PURDUE
  Company Number: US-PURDUE-USA-2020-0180359

PATIENT
  Age: 52 Year
  Sex: Female

DRUGS (14)
  1. OXYCONTIN [Suspect]
     Active Substance: OXYCODONE HYDROCHLORIDE
     Indication: Product used for unknown indication
     Route: 048
  2. OXYCONTIN [Suspect]
     Active Substance: OXYCODONE HYDROCHLORIDE
     Dosage: 60 MILLIGRAM, DAILY (1 TABLET)
     Route: 048
  3. OXYCONTIN [Suspect]
     Active Substance: OXYCODONE HYDROCHLORIDE
     Dosage: 80 MILLIGRAM, DAILY (1 TABLET)
     Route: 048
  4. OXYCONTIN [Suspect]
     Active Substance: OXYCODONE HYDROCHLORIDE
     Route: 048
  5. OXYCONTIN [Suspect]
     Active Substance: OXYCODONE HYDROCHLORIDE
     Route: 048
  6. OXYCONTIN [Suspect]
     Active Substance: OXYCODONE HYDROCHLORIDE
     Route: 048
  7. OXYCONTIN [Suspect]
     Active Substance: OXYCODONE HYDROCHLORIDE
     Route: 048
  8. OXYCODONE HYDROCHLORIDE [Suspect]
     Active Substance: OXYCODONE HYDROCHLORIDE
     Indication: Product used for unknown indication
     Route: 048
  9. HYDROMORPHONE HYDROCHLORIDE [Suspect]
     Active Substance: HYDROMORPHONE HYDROCHLORIDE
     Indication: Product used for unknown indication
     Route: 065
  10. HYDROCODONE BITARTRATE AND ACETAMINOPHEN [Suspect]
     Active Substance: ACETAMINOPHEN\HYDROCODONE BITARTRATE
     Indication: Pain
     Route: 048
  11. HYDROCODONE BITARTRATE AND ACETAMINOPHEN [Suspect]
     Active Substance: ACETAMINOPHEN\HYDROCODONE BITARTRATE
     Route: 048
  12. HYDROCODONE BITARTRATE AND ACETAMINOPHEN [Suspect]
     Active Substance: ACETAMINOPHEN\HYDROCODONE BITARTRATE
     Route: 048
  13. HYDROCODONE BITARTRATE AND ACETAMINOPHEN [Suspect]
     Active Substance: ACETAMINOPHEN\HYDROCODONE BITARTRATE
     Dosage: 1 TABLET, BID
     Route: 048
  14. TRAMADOL [Suspect]
     Active Substance: TRAMADOL
     Indication: Product used for unknown indication
     Route: 048

REACTIONS (25)
  - Hospitalisation [Unknown]
  - Learning disability [Unknown]
  - Cardiac arrest [Recovered/Resolved]
  - Acute hepatic failure [Unknown]
  - Ligament sprain [Unknown]
  - Coma [Unknown]
  - Multiple organ dysfunction syndrome [Recovering/Resolving]
  - Renal failure [Unknown]
  - Lactic acidosis [Unknown]
  - Seizure [Recovered/Resolved]
  - Bipolar disorder [Unknown]
  - Chest injury [Unknown]
  - Unresponsive to stimuli [Unknown]
  - Drug-induced liver injury [Recovering/Resolving]
  - Overdose [Unknown]
  - Drug dependence [Unknown]
  - Balance disorder [Unknown]
  - Migraine [Unknown]
  - Dyspnoea [Unknown]
  - Amnesia [Unknown]
  - Depression [Unknown]
  - Mental status changes [Unknown]
  - Confusional state [Unknown]
  - Hyporesponsive to stimuli [Unknown]
  - Troponin increased [Unknown]

NARRATIVE: CASE EVENT DATE: 20170913
